FAERS Safety Report 9713012 (Version 1)
Quarter: 2013Q4

REPORT INFORMATION
  Report Type: Spontaneous
  Country: US (occurrence: None)
  Receive Date: 20131125
  Receipt Date: 20131125
  Transmission Date: 20140711
  Serious: Yes (Other)
  Sender: FDA-Public Use
  Company Number: None

PATIENT
  Age: 36 Year
  Sex: Female

DRUGS (10)
  1. STIVARGA [Suspect]
     Indication: COLON CANCER
     Route: 048
     Dates: start: 20131003, end: 20131117
  2. VALACYCLOVIR [Concomitant]
  3. FENTANYL [Concomitant]
  4. LISINOPRIL [Concomitant]
  5. MORPHINE [Concomitant]
  6. ONDANSETRON [Concomitant]
  7. METOCLOPRAMIDE [Concomitant]
  8. TRAZODONE [Concomitant]
  9. SENNA [Concomitant]
  10. PORPHENAZINE [Concomitant]

REACTIONS (2)
  - Palmar-plantar erythrodysaesthesia syndrome [None]
  - Drug ineffective [None]
